FAERS Safety Report 8597349-8 (Version None)
Quarter: 2012Q3

REPORT INFORMATION
  Report Type: 
  Country: None (occurrence: None)
  Receive Date: 20120816
  Receipt Date: 20120814
  Transmission Date: 20120928
  Serious: No
  Sender: FDA-Public Use
  Company Number: US-PFIZER INC-2012198710

PATIENT
  Age: 53 Year
  Sex: Male

DRUGS (1)
  1. SOLU-MEDROL [Suspect]
     Dosage: UNK
     Route: 042

REACTIONS (2)
  - RASH PRURITIC [None]
  - DRUG HYPERSENSITIVITY [None]
